FAERS Safety Report 7224072 (Version 26)
Quarter: 2013Q3

REPORT INFORMATION
  Report Type: Report from Study
  Country: CA (occurrence: CA)
  Receive Date: 20091221
  Receipt Date: 20130923
  Transmission Date: 20140515
  Serious: Yes (Other)
  Sender: FDA-Public Use
  Company Number: PHHY2009CA49578

PATIENT
  Age: 74 Year
  Sex: Female

DRUGS (6)
  1. SANDOSTATIN LAR [Suspect]
     Indication: CARCINOID TUMOUR
     Dosage: 30 MG, EVERY 4 WEEKS
     Route: 030
     Dates: start: 20070725
  2. SANDOSTATIN LAR [Suspect]
     Dosage: 30 MG, BIW
     Route: 030
  3. SANDOSTATIN LAR [Suspect]
     Dosage: 30 MG,EVERY 4 WEEKS
     Route: 030
  4. SANDOSTATIN LAR [Suspect]
     Dosage: 20 MG, BIW
     Route: 030
  5. SANDOSTATIN LAR [Suspect]
     Dosage: 30 MG, EVERY 2 WEEKS
     Route: 030
     Dates: end: 20130903
  6. CHEMOTHERAPEUTICS NOS [Concomitant]
     Dosage: UNK UKN, UNK

REACTIONS (21)
  - Bronchitis [Unknown]
  - Fall [Unknown]
  - Malignant neoplasm progression [Unknown]
  - Metastasis [Unknown]
  - Hepatic lesion [Unknown]
  - Feeling abnormal [Unknown]
  - Tooth disorder [Unknown]
  - Blood pressure increased [Unknown]
  - Urinary tract infection [Recovering/Resolving]
  - Influenza like illness [Unknown]
  - Pain [Unknown]
  - Malaise [Unknown]
  - Decreased appetite [Unknown]
  - Lip swelling [Unknown]
  - General physical health deterioration [Unknown]
  - Tooth injury [Unknown]
  - Weight decreased [Unknown]
  - Asthenia [Unknown]
  - Alopecia [Unknown]
  - Nausea [Not Recovered/Not Resolved]
  - Abdominal pain upper [Unknown]
